FAERS Safety Report 21901644 (Version 1)
Quarter: 2023Q1

REPORT INFORMATION
  Report Type: Spontaneous
  Country: US (occurrence: US)
  Receive Date: 20230124
  Receipt Date: 20230124
  Transmission Date: 20230418
  Serious: No
  Sender: FDA-Public Use
  Company Number: US-SA-SAC20230123000893

PATIENT
  Age: 46 Year
  Sex: Male

DRUGS (6)
  1. DUPIXENT [Suspect]
     Active Substance: DUPILUMAB
     Indication: Dermatitis atopic
     Dosage: 300 MG, QOW
     Route: 058
     Dates: start: 20221201
  2. DUPIXENT [Suspect]
     Active Substance: DUPILUMAB
     Indication: Psoriasis
  3. CLOBETASOL [Concomitant]
     Active Substance: CLOBETASOL
  4. FISH OIL [Concomitant]
     Active Substance: FISH OIL
     Dosage: 30 MG
  5. TRIAMCINOLONE ACETONIDE [Concomitant]
     Active Substance: TRIAMCINOLONE ACETONIDE
  6. VITAMIN D3 [Concomitant]
     Active Substance: CHOLECALCIFEROL

REACTIONS (3)
  - Arthralgia [Not Recovered/Not Resolved]
  - Orthopaedic procedure [Unknown]
  - Product use in unapproved indication [Unknown]

NARRATIVE: CASE EVENT DATE: 20221201
